FAERS Safety Report 21688537 (Version 1)
Quarter: 2022Q4

REPORT INFORMATION
  Report Type: Spontaneous
  Country: US (occurrence: US)
  Receive Date: 20221206
  Receipt Date: 20221206
  Transmission Date: 20230113
  Serious: No
  Sender: FDA-Public Use
  Company Number: US-PFIZER INC-202201346431

PATIENT
  Age: 67 Year
  Sex: Female
  Weight: 54.98 kg

DRUGS (1)
  1. DEPO-ESTRADIOL [Suspect]
     Active Substance: ESTRADIOL CYPIONATE
     Indication: Hormone replacement therapy
     Dosage: UNK, WEEKLY (5MG PER ML, HALF A ML)

REACTIONS (1)
  - Therapeutic response unexpected [Unknown]
